FAERS Safety Report 13973718 (Version 1)
Quarter: 2017Q3

REPORT INFORMATION
  Report Type: Spontaneous
  Country: US (occurrence: US)
  Receive Date: 20170914
  Receipt Date: 20170914
  Transmission Date: 20171128
  Serious: Yes (Hospitalization, Other)
  Sender: FDA-Public Use
  Company Number: US-SUPERNUS PHARMACEUTICALS, INC.-2017SUP00246

PATIENT
  Age: 42 Year
  Sex: Female
  Weight: 129.25 kg

DRUGS (10)
  1. OXTELLAR XR [Suspect]
     Active Substance: OXCARBAZEPINE
     Indication: OPTIC NERVE DISORDER
     Dosage: 300 MG, 1X/DAY
     Route: 048
     Dates: start: 2016
  2. TECFIDERA [Concomitant]
     Active Substance: DIMETHYL FUMARATE
     Dosage: 240 MG, 2X/DAY
  3. OXTELLAR XR [Suspect]
     Active Substance: OXCARBAZEPINE
     Indication: SEIZURE
  4. COPAXONE [Suspect]
     Active Substance: GLATIRAMER ACETATE
  5. OXTELLAR XR [Suspect]
     Active Substance: OXCARBAZEPINE
     Indication: SEIZURE
  6. MODAFINIL. [Concomitant]
     Active Substance: MODAFINIL
     Dosage: 250 MG, AS NEEDED
  7. TOPAMAX [Suspect]
     Active Substance: TOPIRAMATE
     Dosage: 100 MG, 2X/DAY
  8. CITALOPRAM [Concomitant]
     Active Substance: CITALOPRAM HYDROBROMIDE
     Dosage: 20 MG, 1X/DAY
  9. OXTELLAR XR [Suspect]
     Active Substance: OXCARBAZEPINE
     Indication: OPTIC NERVE DISORDER
     Dosage: 600 MG, 1X/DAY
     Route: 048
     Dates: start: 2016
  10. CLONAZEPAM. [Concomitant]
     Active Substance: CLONAZEPAM
     Dosage: 2 TABLETS, 1X/DAY

REACTIONS (9)
  - Gastrooesophageal reflux disease [Recovered/Resolved]
  - Vision blurred [Not Recovered/Not Resolved]
  - Somnolence [Recovered/Resolved]
  - Hypertension [Recovered/Resolved]
  - Influenza like illness [Recovered/Resolved]
  - Drug dose omission [Recovered/Resolved]
  - Local reaction [Recovered/Resolved]
  - Disorientation [Recovered/Resolved]
  - Hypoaesthesia eye [Not Recovered/Not Resolved]

NARRATIVE: CASE EVENT DATE: 201609
